FAERS Safety Report 5979996-2 (Version None)
Quarter: 2008Q4

REPORT INFORMATION
  Report Type: 
  Country: None (occurrence: None)
  Receive Date: 20081205
  Receipt Date: 20081201
  Transmission Date: 20090506
  Serious: Yes (Other)
  Sender: FDA-Public Use
  Company Number: US-BAYER-200836982NA

PATIENT
  Age: 30 Year
  Sex: Female
  Weight: 66 kg

DRUGS (1)
  1. MIRENA [Suspect]
     Indication: CONTRACEPTION
     Route: 015
     Dates: start: 20080828, end: 20081027

REACTIONS (5)
  - FACIAL PALSY [None]
  - HYPOAESTHESIA [None]
  - MULTIPLE SCLEROSIS [None]
  - VISION BLURRED [None]
  - VISUAL IMPAIRMENT [None]
